FAERS Safety Report 6333133-3 (Version None)
Quarter: 2009Q3

REPORT INFORMATION
  Report Type: 
  Country: None (occurrence: None)
  Receive Date: 20090828
  Receipt Date: 20090825
  Transmission Date: 20100115
  Serious: Yes (Other)
  Sender: FDA-Public Use
  Company Number: US-MERCK-0908USA04232

PATIENT
  Age: 73 Year
  Sex: Male

DRUGS (7)
  1. ZOCOR [Suspect]
     Route: 065
  2. MIRALAX [Suspect]
     Route: 048
     Dates: start: 20090708, end: 20090807
  3. RAMIPRIL [Suspect]
     Route: 065
  4. ASPIRIN [Suspect]
     Route: 065
  5. TOPROL-XL [Concomitant]
     Route: 065
  6. PRILOSEC [Concomitant]
     Route: 065
  7. DIGOXIN [Concomitant]
     Route: 065

REACTIONS (1)
  - LIP SWELLING [None]
